FAERS Safety Report 9208278 (Version 3)
Quarter: 2014Q1

REPORT INFORMATION
  Report Type: Spontaneous
  Country: US (occurrence: US)
  Receive Date: 20130403
  Receipt Date: 20140107
  Transmission Date: 20141002
  Serious: Yes (Hospitalization, Other)
  Sender: FDA-Public Use
  Company Number: US-B.I. PHARMACEUTICALS,INC./RIDGEFIELD-2013-BI-08645BP

PATIENT
  Age: 91 Year
  Sex: Female

DRUGS (8)
  1. SPIRIVA [Suspect]
     Indication: CHRONIC OBSTRUCTIVE PULMONARY DISEASE
     Dosage: 18 MCG
     Route: 048
     Dates: start: 2010
  2. SPIRIVA [Suspect]
     Indication: WHEEZING
  3. SYMBICORT [Concomitant]
     Route: 055
  4. PRESERVISION [Concomitant]
     Route: 048
  5. SIMVASTATIN [Concomitant]
     Route: 048
  6. ECOTRIN [Concomitant]
     Route: 048
  7. LOSARTAN [Concomitant]
     Route: 048
  8. POTASSIUM [Concomitant]
     Route: 048

REACTIONS (6)
  - Vertigo [Recovered/Resolved]
  - Deafness [Not Recovered/Not Resolved]
  - Choking [Not Recovered/Not Resolved]
  - Dyspnoea [Not Recovered/Not Resolved]
  - Product quality issue [Not Recovered/Not Resolved]
  - Product quality issue [Not Recovered/Not Resolved]
